FAERS Safety Report 4813474-9 (Version None)
Quarter: 2005Q4

REPORT INFORMATION
  Report Type: 
  Country: None (occurrence: None)
  Receive Date: 20051028
  Receipt Date: 20050215
  Transmission Date: 20060501
  Serious: No
  Sender: FDA-Public Use
  Company Number: US-GLAXOSMITHKLINE-A0545725A

PATIENT
  Age: 58 Year
  Sex: Female

DRUGS (4)
  1. ADVAIR DISKUS 100/50 [Suspect]
     Indication: ASTHMA
     Route: 055
     Dates: start: 20020228, end: 20050211
  2. SINGULAIR [Concomitant]
  3. ESTRACE [Concomitant]
  4. ESTRATEST [Concomitant]

REACTIONS (6)
  - BALANCE DISORDER [None]
  - CONFUSIONAL STATE [None]
  - GAIT DISTURBANCE [None]
  - OVERDOSE [None]
  - TREMOR [None]
  - VISUAL DISTURBANCE [None]
